FAERS Safety Report 10230846 (Version 2)
Quarter: 2014Q2

REPORT INFORMATION
  Report Type: Spontaneous
  Country: US (occurrence: US)
  Receive Date: 20140611
  Receipt Date: 20140611
  Transmission Date: 20141212
  Serious: Yes (Death, Hospitalization, Other)
  Sender: FDA-Public Use
  Company Number: US-CELGENEUS-163-21880-14054100

PATIENT
  Age: 76 Year
  Sex: Male
  Weight: 100.79 kg

DRUGS (1)
  1. REVLIMID [Suspect]
     Indication: PLASMA CELL MYELOMA
     Dosage: 15 MILLIGRAM
     Route: 048
     Dates: start: 201405, end: 20140510

REACTIONS (3)
  - Death [Fatal]
  - Infection [Not Recovered/Not Resolved]
  - Confusional state [Not Recovered/Not Resolved]
